FAERS Safety Report 21063892 (Version 1)
Quarter: 2022Q3

REPORT INFORMATION
  Report Type: Report from Study
  Country: MX (occurrence: MX)
  Receive Date: 20220711
  Receipt Date: 20220711
  Transmission Date: 20221026
  Serious: Yes (Disabling, Other)
  Sender: FDA-Public Use
  Company Number: MX-NOVARTISPH-NVSC2022MX156467

PATIENT
  Sex: Female

DRUGS (1)
  1. ENTRESTO [Suspect]
     Active Substance: SACUBITRIL\VALSARTAN
     Indication: Hypertrophic cardiomyopathy
     Dosage: 1 DOSAGE FORM, BID (ONE IN THE MORNING AND ONE IN NIGHT) (STARTED 4 MONTHS AGO)
     Route: 048

REACTIONS (7)
  - Gait disturbance [Not Recovered/Not Resolved]
  - Arteriosclerosis [Unknown]
  - Infarction [Not Recovered/Not Resolved]
  - Hypertrophic cardiomyopathy [Not Recovered/Not Resolved]
  - Oedema peripheral [Unknown]
  - Dizziness [Unknown]
  - Product use in unapproved indication [Unknown]
